FAERS Safety Report 4492797-X (Version None)
Quarter: 2004Q4

REPORT INFORMATION
  Report Type: 
  Country: None (occurrence: None)
  Receive Date: 20041102
  Receipt Date: 20041102
  Transmission Date: 20050328
  Serious: Yes (Disabling)
  Sender: FDA-Public Use
  Company Number: None

PATIENT
  Sex: Female
  Weight: 79.3795 kg

DRUGS (2)
  1. OXYCONTIN [Suspect]
     Indication: DIABETIC NEUROPATHY
     Dosage: 10 MG TWO Q 12
     Dates: start: 20041028
  2. OXYCONTIN [Suspect]
     Indication: PANCREATITIS CHRONIC
     Dosage: 10 MG TWO Q 12
     Dates: start: 20041028

REACTIONS (1)
  - PANCREATITIS [None]
